FAERS Safety Report 19958525 (Version 1)
Quarter: 2021Q4

REPORT INFORMATION
  Report Type: Spontaneous
  Country: MY (occurrence: MY)
  Receive Date: 20211015
  Receipt Date: 20211015
  Transmission Date: 20220304
  Serious: Yes (Other)
  Sender: FDA-Public Use
  Company Number: MY-LUPIN PHARMACEUTICALS INC.-2021-19353

PATIENT
  Age: 41 Year
  Sex: Female

DRUGS (1)
  1. METFORMIN [Suspect]
     Active Substance: METFORMIN HYDROCHLORIDE
     Indication: Gestational diabetes
     Dosage: UNK
     Route: 065

REACTIONS (7)
  - Maternal exposure during pregnancy [Unknown]
  - Appendicitis perforated [Unknown]
  - Placenta accreta [Unknown]
  - Uterine rupture [Unknown]
  - Foetal death [Unknown]
  - Uterine leiomyoma [Unknown]
  - Tachycardia [Unknown]
